FAERS Safety Report 9607363 (Version 1)
Quarter: 2013Q4

REPORT INFORMATION
  Report Type: Spontaneous
  Country: US (occurrence: None)
  Receive Date: 20131004
  Receipt Date: 20131004
  Transmission Date: 20140711
  Serious: Yes (Other)
  Sender: FDA-Public Use
  Company Number: 1924355

PATIENT
  Age: 75 Year
  Sex: Male
  Weight: 91.2 kg

DRUGS (7)
  1. PENTOSTATINE [Suspect]
     Indication: CHRONIC LYMPHOCYTIC LEUKAEMIA
     Dates: start: 20100712, end: 20121015
  2. ALEMTUZUMAB [Suspect]
     Dosage: (3 WEEK)
     Route: 058
     Dates: start: 20110211, end: 20110520
  3. CYCLOPHOSPHAMIDE [Suspect]
     Dates: start: 20100712, end: 20101215
  4. RITUXIMAB [Suspect]
     Dates: start: 20100712, end: 20101215
  5. (ACYCLOVIR /00587301/) [Concomitant]
  6. (ALLOPURINOL) [Concomitant]
  7. (BACTRIM DS) [Concomitant]

REACTIONS (2)
  - Lymphocyte count decreased [None]
  - Thrombocytopenia [None]
